FAERS Safety Report 9040856 (Version 1)
Quarter: 2013Q1

REPORT INFORMATION
  Report Type: Spontaneous
  Country: US (occurrence: None)
  Receive Date: 20130123
  Receipt Date: 20130123
  Transmission Date: 20140127
  Serious: Yes (Other)
  Sender: FDA-Public Use
  Company Number: None

PATIENT
  Age: 38 Year
  Sex: Male
  Weight: 79.7 kg

DRUGS (2)
  1. BUPROPION [Suspect]
     Indication: SMOKING CESSATION THERAPY
     Dosage: 300 MG  EVERY DAY PO
     Route: 048
     Dates: start: 20120515, end: 20120812
  2. VARENICLINE [Suspect]
     Indication: SMOKING CESSATION THERAPY
     Dosage: 1 MG  BID  PO
     Route: 048
     Dates: start: 20120515, end: 20120812

REACTIONS (4)
  - Anxiety [None]
  - Panic attack [None]
  - Claustrophobia [None]
  - Agitation [None]
